FAERS Safety Report 10021894 (Version 2)
Quarter: 2014Q2

REPORT INFORMATION
  Report Type: Report from Study
  Country: JP (occurrence: JP)
  Receive Date: 20140319
  Receipt Date: 20140401
  Transmission Date: 20141212
  Serious: Yes (Death)
  Sender: FDA-Public Use
  Company Number: JP-PFIZER INC-2014074081

PATIENT
  Age: 86 Year
  Sex: Male

DRUGS (18)
  1. REVATIO [Suspect]
     Indication: PULMONARY HYPERTENSION
     Dosage: UNK
     Dates: start: 200906
  2. REVATIO [Suspect]
     Dosage: 20 MG, 3X/DAY (60 MG/DAY)
     Route: 048
     Dates: start: 20111003, end: 20121218
  3. MAGMITT [Concomitant]
     Dosage: UNK
     Route: 048
     Dates: end: 20121218
  4. FAMOTIDINE [Concomitant]
     Dosage: UNK
     Route: 048
     Dates: end: 20121218
  5. METHISTA [Concomitant]
     Dosage: UNK
     Route: 048
     Dates: end: 20121218
  6. EXCEGRAN [Concomitant]
     Dosage: UNK
     Route: 048
     Dates: end: 20121218
  7. HARNAL [Concomitant]
     Dosage: UNK
     Route: 048
     Dates: end: 20121218
  8. LASIX [Concomitant]
     Dosage: UNK
     Route: 048
     Dates: end: 20121218
  9. BAYASPIRIN [Concomitant]
     Dosage: UNK
     Route: 048
     Dates: end: 20121218
  10. CRESTOR [Concomitant]
     Dosage: UNK
     Route: 048
     Dates: end: 20121218
  11. WARFARIN [Concomitant]
     Dosage: UNK
     Route: 048
     Dates: end: 20121218
  12. AMOBAN [Concomitant]
     Dosage: UNK
     Route: 048
     Dates: end: 20121218
  13. LOXONIN [Concomitant]
     Dosage: UNK
     Route: 048
     Dates: end: 20121218
  14. RIVASTACH [Concomitant]
     Dosage: UNK
     Dates: end: 20121218
  15. ADOAIR [Concomitant]
     Dosage: UNK
     Dates: end: 20121218
  16. MEPTIN [Concomitant]
     Dosage: UNK
     Dates: end: 20121218
  17. SPIRIVA [Concomitant]
     Dosage: UNK
     Dates: end: 20121218
  18. HUMALOG MIX [Concomitant]
     Dosage: UNK
     Dates: end: 20121218

REACTIONS (1)
  - Death [Fatal]
